FAERS Safety Report 23215578 (Version 2)
Quarter: 2023Q4

REPORT INFORMATION
  Report Type: Other
  Country: US (occurrence: None)
  Receive Date: 20231122
  Receipt Date: 20231127
  Transmission Date: 20240110
  Serious: Yes (Life-Threatening, Other)
  Sender: FDA-Public Use
  Company Number: US-ROCHE-3460789

PATIENT
  Age: 30 Year
  Sex: Female

DRUGS (1)
  1. RITUXIMAB [Suspect]
     Active Substance: RITUXIMAB
     Indication: Myasthenia gravis
     Route: 042

REACTIONS (4)
  - Acute respiratory distress syndrome [Unknown]
  - Shock [Recovered/Resolved]
  - Hypoxia [Unknown]
  - Haemoconcentration [Unknown]
